FAERS Safety Report 6718558-6 (Version None)
Quarter: 2010Q2

REPORT INFORMATION
  Report Type: 
  Country: None (occurrence: None)
  Receive Date: 20100503
  Receipt Date: 20100423
  Transmission Date: 20101027
  Serious: Yes (Hospitalization)
  Sender: FDA-Public Use
  Company Number: DSU-2010-01752

PATIENT
  Age: 76 Year
  Sex: Female
  Weight: 54.4316 kg

DRUGS (3)
  1. BENICAR HCT [Suspect]
     Indication: HYPERTENSION
     Dosage: 40/25MG (QD), PER ORAL
     Route: 048
     Dates: end: 20090501
  2. TOPROL-XL [Suspect]
     Indication: HYPERTENSION
     Dates: end: 20090501
  3. DYNACIRC [Suspect]
     Indication: HYPERTENSION
     Dates: end: 20090501

REACTIONS (8)
  - ASTHENIA [None]
  - COELIAC DISEASE [None]
  - DIARRHOEA [None]
  - GASTRITIS EROSIVE [None]
  - HYPOTENSION [None]
  - HYPOVOLAEMIA [None]
  - SPINAL DISORDER [None]
  - WEIGHT DECREASED [None]
